FAERS Safety Report 14873729 (Version 1)
Quarter: 2018Q2

REPORT INFORMATION
  Report Type: Spontaneous
  Country: NZ (occurrence: NZ)
  Receive Date: 20180510
  Receipt Date: 20180510
  Transmission Date: 20180711
  Serious: Yes (Hospitalization, Disabling)
  Sender: FDA-Public Use
  Company Number: NZ-ABBVIE-18S-118-2349296-00

PATIENT
  Age: 24 Month
  Sex: Female

DRUGS (1)
  1. EPILIM [Suspect]
     Active Substance: VALPROATE SODIUM
     Indication: MATERNAL EXPOSURE TIMING UNSPECIFIED
     Route: 064

REACTIONS (7)
  - Foetal exposure during pregnancy [Unknown]
  - Respiratory disorder [Unknown]
  - Speech disorder developmental [Unknown]
  - Unevaluable event [Unknown]
  - Cognitive disorder [Unknown]
  - Physical disability [Unknown]
  - Pneumonia [Unknown]
